FAERS Safety Report 5256914-6 (Version None)
Quarter: 2007Q1

REPORT INFORMATION
  Report Type: 
  Country: None (occurrence: None)
  Receive Date: 20070307
  Receipt Date: 20070223
  Transmission Date: 20070707
  Serious: Yes (Life-Threatening)
  Sender: FDA-Public Use
  Company Number: JP-ELI_LILLY_AND_COMPANY-JP200702003834

PATIENT
  Age: 38 Year
  Sex: Male
  Weight: 80 kg

DRUGS (6)
  1. OLANZAPINE [Suspect]
     Indication: SCHIZOPHRENIA
     Dosage: 5 MG, DAILY (1/D)
     Route: 048
  2. SEROQUEL [Concomitant]
     Indication: SCHIZOPHRENIA
     Dosage: 100 MG, DAILY (1/D)
     Route: 048
  3. VEGETAMIN B [Concomitant]
     Indication: SCHIZOPHRENIA
     Dosage: 1 D/F, DAILY (1/D)
     Route: 048
  4. ROHYPNOL [Concomitant]
     Indication: INSOMNIA
     Dosage: 4 MG, DAILY (1/D)
     Route: 048
  5. ABILIT [Concomitant]
     Indication: SCHIZOPHRENIA
     Dosage: 100 MG, DAILY (1/D)
     Route: 048
  6. LEXOTAN [Concomitant]
     Indication: ANXIETY
     Dosage: 15 MG, DAILY (1/D)
     Route: 048

REACTIONS (3)
  - BLOOD TRIGLYCERIDES INCREASED [None]
  - LOW DENSITY LIPOPROTEIN INCREASED [None]
  - MYOCARDIAL INFARCTION [None]
